FAERS Safety Report 16058913 (Version 2)
Quarter: 2021Q3

REPORT INFORMATION
  Report Type: Spontaneous
  Country: US (occurrence: US)
  Receive Date: 20190311
  Receipt Date: 20210709
  Transmission Date: 20211014
  Serious: Yes (Other)
  Sender: FDA-Public Use
  Company Number: US-PFIZER INC-2019102009

PATIENT
  Age: 46 Year
  Sex: Female

DRUGS (1)
  1. XELJANZ XR [Suspect]
     Active Substance: TOFACITINIB CITRATE
     Dosage: 11 MG, UNK

REACTIONS (8)
  - Middle insomnia [Unknown]
  - Malignant melanoma [Recovered/Resolved]
  - Joint stiffness [Unknown]
  - Asthenia [Unknown]
  - Joint swelling [Unknown]
  - Depressed mood [Unknown]
  - Arthralgia [Unknown]
  - Psoriasis [Unknown]
